FAERS Safety Report 9921190 (Version 1)
Quarter: 2014Q1

REPORT INFORMATION
  Report Type: Spontaneous
  Country: US (occurrence: None)
  Receive Date: 20140221
  Receipt Date: 20140221
  Transmission Date: 20141002
  Serious: Yes (Other)
  Sender: FDA-Public Use
  Company Number: None

PATIENT
  Age: 70 Year
  Sex: Female

DRUGS (1)
  1. GABAPENTIN [Suspect]
     Indication: NERVE INJURY
     Dosage: 1 CAPSULE 2 X DAILY ORAL
     Route: 048
     Dates: start: 20130206, end: 20130208

REACTIONS (2)
  - Nightmare [None]
  - Fear [None]
